FAERS Safety Report 5166060-8 (Version None)
Quarter: 2006Q4

REPORT INFORMATION
  Report Type: 
  Country: None (occurrence: None)
  Receive Date: 20061128
  Receipt Date: 20061116
  Transmission Date: 20070319
  Serious: Yes (Congenital Anomaly, Other)
  Sender: FDA-Public Use
  Company Number: 001-0981-M0203128

PATIENT
  Age: 54 Year
  Sex: Female
  Weight: 81.6475 kg

DRUGS (13)
  1. LIPITOR [Suspect]
     Indication: BLOOD CHOLESTEROL INCREASED
     Dosage: 10 MG (10 MG, 1 IN 1 D); ORAL
     Route: 048
     Dates: start: 20020401, end: 20020502
  2. CELEBREX [Suspect]
     Indication: ARTHRITIS
  3. NORVASC [Suspect]
     Indication: HYPERTENSION
  4. ZESTRIL [Concomitant]
  5. RABEPRAZOLE SODIUM [Concomitant]
  6. VITAMIN E [Concomitant]
  7. VITAMIN D [Concomitant]
  8. ASCORBIC ACID [Concomitant]
  9. CITRACAL (CALCIUM CITRATE) [Concomitant]
  10. KLOR-CON [Concomitant]
  11. HYDROCHLOROTHIAZIDE [Concomitant]
  12. VITAMIN B COMPLEX (CALCIUM PANTHOTHENATE, NICTINAMIDE, PYRIDOXINE HYDR [Concomitant]
  13. NASONEX [Concomitant]

REACTIONS (26)
  - ALOPECIA [None]
  - ANOREXIA [None]
  - ARTHRALGIA [None]
  - BLOOD CHOLESTEROL INCREASED [None]
  - CEREBRAL HAEMORRHAGE [None]
  - CHEST PAIN [None]
  - DEPRESSION [None]
  - FACIAL PAIN [None]
  - FATIGUE [None]
  - FINGER DEFORMITY [None]
  - HEADACHE [None]
  - HYPERTENSION [None]
  - HYPOAESTHESIA [None]
  - ISCHAEMIA [None]
  - KIDNEY ENLARGEMENT [None]
  - LENTIGO [None]
  - MICROANGIOPATHY [None]
  - MUSCULOSKELETAL STIFFNESS [None]
  - MYALGIA [None]
  - NOCTURIA [None]
  - PAIN IN EXTREMITY [None]
  - PARAESTHESIA [None]
  - SINUS POLYP [None]
  - TENDONITIS [None]
  - WEIGHT DECREASED [None]
  - WEIGHT INCREASED [None]
